FAERS Safety Report 10425640 (Version 2)
Quarter: 2014Q3

REPORT INFORMATION
  Report Type: Spontaneous
  Country: US (occurrence: US)
  Receive Date: 20140903
  Receipt Date: 20140903
  Transmission Date: 20150326
  Serious: No
  Sender: FDA-Public Use
  Company Number: US-ASTRAZENECA-2011SE15288

PATIENT
  Age: 79 Year
  Sex: Female
  Weight: 61.2 kg

DRUGS (2)
  1. VITAMIN [Concomitant]
     Active Substance: VITAMINS
  2. CRESTOR [Suspect]
     Active Substance: ROSUVASTATIN CALCIUM
     Indication: BLOOD CHOLESTEROL ABNORMAL
     Route: 048
     Dates: start: 20110216

REACTIONS (4)
  - Weight decreased [Not Recovered/Not Resolved]
  - Drug dose omission [Unknown]
  - Pruritus [Unknown]
  - Blood cholesterol increased [Unknown]
